FAERS Safety Report 5759166-3 (Version None)
Quarter: 2008Q2

REPORT INFORMATION
  Report Type: 
  Country: None (occurrence: None)
  Receive Date: 20080604
  Receipt Date: 20080523
  Transmission Date: 20081010
  Serious: Yes (Hospitalization, Other)
  Sender: FDA-Public Use
  Company Number: US-PFIZER INC-2008022995

PATIENT
  Sex: Female
  Weight: 102.5 kg

DRUGS (13)
  1. CHANTIX [Suspect]
     Indication: SMOKING CESSATION THERAPY
     Route: 048
  2. DYAZIDE [Concomitant]
  3. MONTELUKAST SODIUM [Concomitant]
     Indication: ASTHMA
  4. ZOLOFT [Concomitant]
     Indication: DEPRESSION
     Dosage: DAILY DOSE:200MG
  5. TRANXENE [Concomitant]
     Indication: PANIC ATTACK
  6. TRANXENE [Concomitant]
     Indication: NERVOUSNESS
  7. DICYCLOMINE [Concomitant]
  8. VITAMIN D [Concomitant]
     Indication: VITAMIN D DEFICIENCY
  9. POTASSIUM CHLORIDE [Concomitant]
     Indication: BLOOD POTASSIUM DECREASED
  10. OTHER RESPIRATORY SYSTEM PRODUCTS [Concomitant]
  11. HOMEOPATHIC PREPARATION [Concomitant]
  12. HERBAL PREPARATION [Concomitant]
     Indication: COUGH
  13. TRIAMTERENE [Concomitant]

REACTIONS (9)
  - ANKLE FRACTURE [None]
  - DEPRESSION [None]
  - DIZZINESS [None]
  - INAPPROPRIATE SCHEDULE OF DRUG ADMINISTRATION [None]
  - INFLUENZA [None]
  - IRRITABILITY [None]
  - NAUSEA [None]
  - STRESS [None]
  - WEIGHT DECREASED [None]
